FAERS Safety Report 25890427 (Version 1)
Quarter: 2025Q4

REPORT INFORMATION
  Report Type: Spontaneous
  Country: US (occurrence: None)
  Receive Date: 20251006
  Receipt Date: 20251006
  Transmission Date: 20260118
  Serious: Yes (Other)
  Sender: FDA-CTU
  Company Number: None

PATIENT
  Age: 65 Year
  Sex: Male
  Weight: 99 kg

DRUGS (1)
  1. PIOGLITAZONE [Suspect]
     Active Substance: PIOGLITAZONE
     Indication: Diabetes mellitus
     Dates: start: 20230306, end: 20250403

REACTIONS (5)
  - Injury [None]
  - Bladder mass [None]
  - Blood urine present [None]
  - Pollakiuria [None]
  - Bladder pain [None]

NARRATIVE: CASE EVENT DATE: 20250604
